FAERS Safety Report 15402531 (Version 2)
Quarter: 2018Q4

REPORT INFORMATION
  Report Type: Report from Study
  Country: US (occurrence: US)
  Receive Date: 20180919
  Receipt Date: 20181119
  Transmission Date: 20190204
  Serious: Yes (Hospitalization, Other)
  Sender: FDA-Public Use
  Company Number: US-SA-2018SA248956

PATIENT
  Age: 69 Year
  Sex: Female

DRUGS (1)
  1. INSULIN GLARGINE [Suspect]
     Active Substance: INSULIN GLARGINE
     Indication: TYPE 2 DIABETES MELLITUS
     Dosage: 70 U, QD
     Route: 058
     Dates: start: 2013

REACTIONS (7)
  - Musculoskeletal discomfort [Not Recovered/Not Resolved]
  - Fall [Unknown]
  - Cardiac failure congestive [Not Recovered/Not Resolved]
  - Pleural effusion [Unknown]
  - Renal failure [Not Recovered/Not Resolved]
  - Back pain [Not Recovered/Not Resolved]
  - Compression fracture [Unknown]

NARRATIVE: CASE EVENT DATE: 20180830
